FAERS Safety Report 21966630 (Version 1)
Quarter: 2023Q1

REPORT INFORMATION
  Report Type: Report from Study
  Country: FR (occurrence: FR)
  Receive Date: 20230208
  Receipt Date: 20230208
  Transmission Date: 20230418
  Serious: Yes (Hospitalization, Other)
  Sender: FDA-Public Use
  Company Number: FR-Accord-299159

PATIENT
  Age: 56 Year
  Sex: Female

DRUGS (4)
  1. MYCOPHENOLATE MOFETIL [Suspect]
     Active Substance: MYCOPHENOLATE MOFETIL
     Indication: Dermatomyositis
     Dosage: 2 G PER DAY
  2. PREDNISONE [Suspect]
     Active Substance: PREDNISONE
     Indication: Dermatomyositis
     Dosage: 1 MG/KG/DAY
  3. RITUXIMAB [Concomitant]
     Active Substance: RITUXIMAB
     Indication: Dermatomyositis
     Dosage: TOTAL OF FIVE PERFUSIONS OF 1000 MG EVERY SIX MONTHS
  4. IMMUNOGLOBULIN [Concomitant]
     Indication: Dermatomyositis
     Dosage: 2 G/KG/MONTH
     Route: 042

REACTIONS (2)
  - Phaeohyphomycosis [Recovered/Resolved]
  - Fungal infection [Recovered/Resolved]
